FAERS Safety Report 15458361 (Version 1)
Quarter: 2018Q4

REPORT INFORMATION
  Report Type: Spontaneous
  Country: US (occurrence: US)
  Receive Date: 20181003
  Receipt Date: 20181003
  Transmission Date: 20190204
  Serious: No
  Sender: FDA-Public Use
  Company Number: US-AMGEN-USASP2018134004

PATIENT
  Age: 44 Year
  Sex: Female

DRUGS (23)
  1. LASIX [Concomitant]
     Active Substance: FUROSEMIDE
     Dosage: 40 MG, UNK
  2. LEVEMIR [Concomitant]
     Active Substance: INSULIN DETEMIR
     Dosage: SOL 100UNIT/ML
  3. XANAX [Concomitant]
     Active Substance: ALPRAZOLAM
     Dosage: 1 MG, UNK
  4. CYCLOBENZAPRIN [Concomitant]
     Active Substance: CYCLOBENZAPRINE
     Dosage: 10 MG, UNK
  5. DOXEPIN HCL [Concomitant]
     Active Substance: DOXEPIN HYDROCHLORIDE
     Dosage: 50 MG, UNK
  6. POTASSIUM [Concomitant]
     Active Substance: POTASSIUM
     Dosage: 10 MEQ, UNK
  7. ENBREL [Suspect]
     Active Substance: ETANERCEPT
     Indication: PULMONARY FIBROSIS
     Dosage: 50 MG, QWK
     Route: 058
  8. PRAVASTATIN. [Concomitant]
     Active Substance: PRAVASTATIN
     Dosage: 40 MG, UNK
  9. PREDNISONE. [Concomitant]
     Active Substance: PREDNISONE
     Dosage: 5 MG, UNK
  10. ZYRTEC [Concomitant]
     Active Substance: CETIRIZINE HYDROCHLORIDE
     Dosage: 10 MG, UNK
  11. DESVENLAFAXINE. [Concomitant]
     Active Substance: DESVENLAFAXINE
     Dosage: 100 MG, UNK
  12. LISINOPRIL. [Concomitant]
     Active Substance: LISINOPRIL
     Dosage: 20 MG, UNK
  13. GLIPIZIDE. [Concomitant]
     Active Substance: GLIPIZIDE
     Dosage: 10 MG, UNK
  14. JANUVIA [Concomitant]
     Active Substance: SITAGLIPTIN PHOSPHATE
     Dosage: 50 MG, UNK
  15. NOVOLIN [Concomitant]
     Active Substance: INSULIN HUMAN
     Dosage: 70/3 SUS (70-30)
  16. OLANZAPINE. [Concomitant]
     Active Substance: OLANZAPINE
     Dosage: 5 MG, UNK
  17. OMEPRAZOLE. [Concomitant]
     Active Substance: OMEPRAZOLE
     Dosage: 20 MG, UNK
  18. PLAQUENIL [Concomitant]
     Active Substance: HYDROXYCHLOROQUINE SULFATE
     Dosage: 200 MG, UNK
  19. RANITIDINE. [Concomitant]
     Active Substance: RANITIDINE
     Dosage: 1 TABLET 150 MG
  20. OFEV [Concomitant]
     Active Substance: NINTEDANIB
     Dosage: 150 MG, UNK
  21. TYLENOL [Concomitant]
     Active Substance: ACETAMINOPHEN
     Dosage: 325 MG, UNK
  22. VENTOLIN HFA [Concomitant]
     Active Substance: ALBUTEROL SULFATE
     Dosage: 108 (90)
  23. ADVAIR HFA [Concomitant]
     Active Substance: FLUTICASONE PROPIONATE\SALMETEROL XINAFOATE
     Dosage: 205-50MC

REACTIONS (1)
  - Off label use [Unknown]
